FAERS Safety Report 23396119 (Version 3)
Quarter: 2024Q1

REPORT INFORMATION
  Report Type: Spontaneous
  Country: US (occurrence: US)
  Receive Date: 20240112
  Receipt Date: 20240301
  Transmission Date: 20240410
  Serious: Yes (Hospitalization, Other)
  Sender: FDA-Public Use
  Company Number: US-SUN PHARMACEUTICAL INDUSTRIES LTD-2023R1-424373

PATIENT
  Age: 59 Year
  Sex: Female

DRUGS (5)
  1. CLOZAPINE [Interacting]
     Active Substance: CLOZAPINE
     Indication: Bipolar disorder
     Dosage: UNK (75 MG IN THE MORNING AND 125 MG OVER 10 DAYS)
     Route: 065
  2. CLOZAPINE [Interacting]
     Active Substance: CLOZAPINE
     Indication: Depression
     Dosage: UNK (25 MG IN THE MORNING AND 50 MG IN THE EVENING)
     Route: 065
  3. CLOZAPINE [Interacting]
     Active Substance: CLOZAPINE
     Dosage: 50 MILLIGRAM, BID
     Route: 065
  4. LITHIUM [Interacting]
     Active Substance: LITHIUM
     Indication: Bipolar disorder
     Dosage: UNK (450 MG IN THE EVENING BY DAY 50)
     Route: 065
  5. LITHIUM [Interacting]
     Active Substance: LITHIUM
     Indication: Depression
     Dosage: 300 MILLIGRAM, DAILY
     Route: 065

REACTIONS (2)
  - Myoclonus [Recovered/Resolved]
  - Drug interaction [Unknown]
